FAERS Safety Report 13561821 (Version 1)
Quarter: 2017Q2

REPORT INFORMATION
  Report Type: Spontaneous
  Country: US (occurrence: US)
  Receive Date: 20170518
  Receipt Date: 20170518
  Transmission Date: 20170830
  Serious: Yes (Other)
  Sender: FDA-Public Use
  Company Number: US-MYLANLABS-2017M1029458

PATIENT

DRUGS (1)
  1. ZONISAMIDE CAPSULES, USP [Suspect]
     Active Substance: ZONISAMIDE
     Indication: SEIZURE
     Dosage: 4 DF, QH
     Route: 048
     Dates: start: 20150825

REACTIONS (2)
  - Drug dose omission [Unknown]
  - Seizure [Unknown]
